FAERS Safety Report 17158386 (Version 1)
Quarter: 2019Q4

REPORT INFORMATION
  Report Type: Spontaneous
  Country: US (occurrence: US)
  Receive Date: 20191213
  Receipt Date: 20191213
  Transmission Date: 20200122
  Serious: Yes (Hospitalization)
  Sender: FDA-Public Use
  Company Number: None

PATIENT
  Age: 58 Year
  Sex: Male
  Weight: 93.1 kg

DRUGS (3)
  1. TRAMADOL 50MG Q 6 HOURS PRN [Concomitant]
  2. RIVAROXABAM [Suspect]
     Active Substance: RIVAROXABAN
     Indication: THROMBOSIS PROPHYLAXIS
     Route: 048
  3. CYCLOBENZAPRINE 10MG TID PRN [Concomitant]

REACTIONS (5)
  - Flank pain [None]
  - Pain [None]
  - Haemorrhoidal haemorrhage [None]
  - Rectal haemorrhage [None]
  - Gastrointestinal haemorrhage [None]

NARRATIVE: CASE EVENT DATE: 20150921
